FAERS Safety Report 8174033-6 (Version None)
Quarter: 2012Q1

REPORT INFORMATION
  Report Type: 
  Country: None (occurrence: None)
  Receive Date: 20120229
  Receipt Date: 20120217
  Transmission Date: 20120608
  Serious: Yes (Hospitalization)
  Sender: FDA-Public Use
  Company Number: FR-ROCHE-1041416

PATIENT
  Sex: Male

DRUGS (19)
  1. NICARDIPINE HYDROCHLORIDE [Concomitant]
     Dates: start: 20090618
  2. VELCADE [Concomitant]
     Dates: start: 20090719, end: 20090721
  3. PROGRAF [Concomitant]
     Dates: start: 20090516
  4. LEUCOVORIN CALCIUM [Concomitant]
     Dates: start: 20091201
  5. RENAGEL [Concomitant]
     Dates: start: 20091201
  6. VELCADE [Concomitant]
     Dates: start: 20091012, end: 20091015
  7. MYCOPHENOLATE MOFETIL (CELLCEPT) [Concomitant]
     Dates: start: 20090101, end: 20091229
  8. LASIX [Concomitant]
     Dates: start: 20091201
  9. MABTHERA [Suspect]
     Indication: RENAL TRANSPLANT
     Route: 042
     Dates: start: 20090527
  10. UN ALFA [Concomitant]
     Dates: start: 20091201
  11. EUPRESSYL [Concomitant]
     Dates: start: 20090624
  12. BACTRIM [Concomitant]
     Dates: start: 20090517, end: 20091211
  13. VELCADE [Concomitant]
     Dates: start: 20090710, end: 20090713
  14. PREDNISONE TAB [Concomitant]
     Dates: start: 20090516
  15. VALGANCICLOVIR [Concomitant]
     Dates: start: 20090101, end: 20091211
  16. NEXIUM [Concomitant]
     Dates: start: 20090701
  17. FUNGIZONE [Concomitant]
     Dates: start: 20090517, end: 20091201
  18. NEBIVOLOL HCL [Concomitant]
     Dates: start: 20091023
  19. CALCIDIA [Concomitant]
     Dates: start: 20090613, end: 20091201

REACTIONS (7)
  - DIARRHOEA [None]
  - ASTHENIA [None]
  - RENAL IMPAIRMENT [None]
  - RENAL FAILURE ACUTE [None]
  - PANCYTOPENIA [None]
  - DECREASED APPETITE [None]
  - ATRIOVENTRICULAR BLOCK COMPLETE [None]
